FAERS Safety Report 8555623-5 (Version None)
Quarter: 2012Q3

REPORT INFORMATION
  Report Type: 
  Country: None (occurrence: None)
  Receive Date: 20120731
  Receipt Date: 20120717
  Transmission Date: 20120928
  Serious: Yes (Other)
  Sender: FDA-Public Use
  Company Number: US-ELI_LILLY_AND_COMPANY-US201206008682

PATIENT
  Age: 58 Year
  Sex: Male

DRUGS (2)
  1. CYMBALTA [Suspect]
     Indication: OFF LABEL USE
     Dosage: 30 MG, QD
     Route: 065
  2. DOXYCYCLINE HCL [Concomitant]

REACTIONS (6)
  - BLISTER [None]
  - EXFOLIATIVE RASH [None]
  - RASH MACULAR [None]
  - OFF LABEL USE [None]
  - SKIN DISCOLOURATION [None]
  - ERYTHEMA [None]
